FAERS Safety Report 18313381 (Version 1)
Quarter: 2020Q3

REPORT INFORMATION
  Report Type: Spontaneous
  Country: GB (occurrence: GB)
  Receive Date: 20200925
  Receipt Date: 20200925
  Transmission Date: 20201103
  Serious: Yes (Hospitalization)
  Sender: FDA-Public Use
  Company Number: GB-TEVA-2020-GB-1830385

PATIENT
  Age: 79 Year
  Sex: Female

DRUGS (11)
  1. PROCHLORPERAZINE. [Suspect]
     Active Substance: PROCHLORPERAZINE
     Dosage: 15MG
     Dates: start: 20200720
  2. MOMETASONE [Concomitant]
     Active Substance: MOMETASONE
     Dosage: 100MCG
  3. OMEPRAZOLE. [Suspect]
     Active Substance: OMEPRAZOLE
     Dosage: ONE OR TWO TO BE TAKEN EACH DAY, 20MG
  4. AZITHROMYCIN ANHYDROUS. [Concomitant]
     Active Substance: AZITHROMYCIN ANHYDROUS
     Dosage: 750MG
  5. ACIDEX [Concomitant]
     Active Substance: CALCIUM CARBONATE\SODIUM ALGINATE\SODIUM BICARBONATE
  6. DOXYCYCLINE. [Concomitant]
     Active Substance: DOXYCYCLINE
     Dosage: TWO TO BE TAKEN ON THE FIRST DAY THEN ONE TO BE TAKEN EACH DAY, 16 CAPSULES
     Dates: start: 20200817
  7. RELVAR ELLIPTA [Concomitant]
     Active Substance: FLUTICASONE FUROATE\VILANTEROL TRIFENATATE
     Dosage: PUFF, 184MICROGRAMS/DOSE / 22MICROGRAMS/DOSE
  8. COCODAMOL [Concomitant]
     Active Substance: ACETAMINOPHEN\CODEINE PHOSPHATE
     Dosage: 8MG/500MG, 8 DOSAGE FORMS
  9. TILDIEM LA [Concomitant]
     Active Substance: DILTIAZEM HYDROCHLORIDE
     Dosage: 1 DOSAGE FORM
  10. SALBUTAMOL [Concomitant]
     Active Substance: ALBUTEROL
     Dosage: PUFF, 200MICROGRAMS/DOSE, 1 DOSAGE FORM
  11. APIXABAN [Concomitant]
     Active Substance: APIXABAN
     Dosage: 10MG

REACTIONS (2)
  - Dyskinesia [Unknown]
  - Hyponatraemia [Unknown]
